FAERS Safety Report 10050869 (Version 8)
Quarter: 2015Q4

REPORT INFORMATION
  Report Type: Spontaneous
  Country: US (occurrence: US)
  Receive Date: 20140401
  Receipt Date: 20151007
  Transmission Date: 20160304
  Serious: Yes (Other)
  Sender: FDA-Public Use
  Company Number: US-PFIZER INC-2014087309

PATIENT
  Age: 47 Year
  Sex: Male

DRUGS (21)
  1. TRILIPIX [Concomitant]
     Active Substance: FENOFIBRIC ACID
     Dosage: 1 DF, 1X/DAY
  2. OXYCONTIN [Concomitant]
     Active Substance: OXYCODONE HYDROCHLORIDE
     Dosage: 100 MG, 2X/DAY (TAKE ONE 80MG TAB AND ONE 20MG TAB TO MAKE 100MG EVERY 12 HOURS)
     Route: 048
     Dates: start: 20140924
  3. ADALAT CC [Concomitant]
     Active Substance: NIFEDIPINE
     Dosage: 60 MG, 1X/DAY
     Route: 048
     Dates: start: 20141111
  4. MIRALAX [Concomitant]
     Active Substance: POLYETHYLENE GLYCOL 3350
     Dosage: 1 DF, UNK
     Route: 048
  5. TOPROL XL [Concomitant]
     Active Substance: METOPROLOL SUCCINATE
     Dosage: 25 MG, 1X/DAY
     Route: 048
  6. COMPAZINE [Concomitant]
     Active Substance: PROCHLORPERAZINE MALEATE
     Indication: NAUSEA
     Dosage: 10 MG, AS NEEDED (1 TAB(S) ORALLY EVERY 4 HOURS AS NEEDED)
     Route: 048
     Dates: start: 20140630
  7. NOVOLOG [Concomitant]
     Active Substance: INSULIN ASPART
     Dosage: 100 IU/ML
     Route: 058
  8. SUTENT [Suspect]
     Active Substance: SUNITINIB MALATE
     Dosage: 37.5 MG, DAILY
     Dates: start: 20140320
  9. ZOFRAN [Concomitant]
     Active Substance: ONDANSETRON HYDROCHLORIDE
     Indication: NAUSEA
     Dosage: 8 MG, 3X/DAY (1 TAB(S) ORALLY EVERY 8 HOURS, AS NEEDED )
     Route: 048
     Dates: start: 20141211
  10. ZOFRAN [Concomitant]
     Active Substance: ONDANSETRON HYDROCHLORIDE
     Indication: VOMITING
  11. STOMATITIS COCKTAIL [Concomitant]
     Dosage: UNK, AS NEEDED (5-10 MILLILITER(S) SWISH + SWALLOW 3 TIMES A DAY AS NEEDED)
     Route: 048
     Dates: start: 20141111
  12. SUTENT [Suspect]
     Active Substance: SUNITINIB MALATE
     Indication: PANCREATIC NEUROENDOCRINE TUMOUR METASTATIC
     Dosage: 37.5 MG, UNK
     Dates: start: 201310
  13. COMPAZINE [Concomitant]
     Active Substance: PROCHLORPERAZINE MALEATE
     Indication: VOMITING
  14. SUTENT [Suspect]
     Active Substance: SUNITINIB MALATE
     Dosage: 37.5 MG, DAILY
     Dates: start: 20140721
  15. ZYRTEC [Concomitant]
     Active Substance: CETIRIZINE HYDROCHLORIDE
     Dosage: 1 DF, 1X/DAY
  16. VIAGRA [Concomitant]
     Active Substance: SILDENAFIL CITRATE
     Dosage: 100 MG, AS NEEDED
     Route: 048
     Dates: start: 20141111
  17. REGLAN [Concomitant]
     Active Substance: METOCLOPRAMIDE HYDROCHLORIDE
     Dosage: 10 MG, 3X/DAY (1 TAB(S) ORALLY 3 TIMES A DAY (BEFORE MEALS))
     Route: 048
     Dates: start: 20140829
  18. VITAMIN D3 [Concomitant]
     Active Substance: CHOLECALCIFEROL
     Indication: ROUTINE HEALTH MAINTENANCE
     Dosage: 5000 IU, 1X/DAY
     Route: 048
     Dates: start: 20140828
  19. DEPO-TESTOSTERONE [Concomitant]
     Active Substance: TESTOSTERONE CYPIONATE
     Dosage: 200MG/ML, 1X/DAY
     Route: 030
  20. ROXICODONE [Concomitant]
     Active Substance: OXYCODONE HYDROCHLORIDE
     Indication: PAIN MANAGEMENT
     Dosage: 30 MG, AS NEEDED (1 TAB(S) ORALLY EVERY 4 HOURS, NO MORE THAN 6 TABLETS IN 24 HOURS)
     Route: 048
     Dates: start: 20141118
  21. PRILOSEC [Concomitant]
     Active Substance: OMEPRAZOLE MAGNESIUM
     Dosage: 40 MG, 2X/DAY
     Route: 048
     Dates: start: 20150114

REACTIONS (22)
  - Chromaturia [Unknown]
  - Cholelithiasis [Unknown]
  - Liver function test abnormal [Unknown]
  - Contusion [Unknown]
  - Nausea [Not Recovered/Not Resolved]
  - Sweat discolouration [Unknown]
  - Cholecystitis [Unknown]
  - Retching [Unknown]
  - Blood blister [Unknown]
  - Thyroid function test abnormal [Unknown]
  - Constipation [Unknown]
  - Weight increased [Unknown]
  - Abdominal pain [Unknown]
  - Fatigue [Unknown]
  - Dysgeusia [Unknown]
  - Decreased appetite [Unknown]
  - Blood pressure increased [Unknown]
  - White blood cell count decreased [Unknown]
  - Blister [Unknown]
  - Palmar-plantar erythrodysaesthesia syndrome [Unknown]
  - Hair colour changes [Unknown]
  - Sinusitis [Unknown]
